FAERS Safety Report 7911142-8 (Version None)
Quarter: 2011Q4

REPORT INFORMATION
  Report Type: 
  Country: None (occurrence: None)
  Receive Date: 20111109
  Receipt Date: 20111103
  Transmission Date: 20120403
  Serious: Yes (Other)
  Sender: FDA-Public Use
  Company Number: AUR-APL-2011-05208

PATIENT
  Age: 81 Year
  Sex: Female
  Weight: 55.3 kg

DRUGS (9)
  1. OLANZAPINE [Suspect]
     Indication: MAJOR DEPRESSION
     Dosage: ORAL
     Route: 048
     Dates: start: 20110413, end: 20110731
  2. LORAZEPAM [Concomitant]
  3. LEVOTHYROXINE SODIUM [Concomitant]
  4. SIMVASTATIN [Concomitant]
  5. ASPIRIN [Concomitant]
  6. ZOLPIDEM [Concomitant]
  7. VALDOXAN [Suspect]
     Indication: MAJOR DEPRESSION
     Dosage: 25 MG (25 MG, 1 IN 1 D), ORAL
     Route: 048
     Dates: start: 20110730, end: 20110730
  8. RAMIPRIL [Concomitant]
  9. MIRTAZAPINE [Suspect]
     Indication: MAJOR DEPRESSION
     Dosage: ORAL
     Route: 048
     Dates: start: 20100920

REACTIONS (6)
  - SYNCOPE [None]
  - LOSS OF CONSCIOUSNESS [None]
  - HYPOTENSION [None]
  - AMNESIA [None]
  - ABDOMINAL PAIN [None]
  - DRUG INTERACTION [None]
